FAERS Safety Report 10746424 (Version 4)
Quarter: 2015Q2

REPORT INFORMATION
  Report Type: Spontaneous
  Country: IT (occurrence: IT)
  Receive Date: 20150128
  Receipt Date: 20150527
  Transmission Date: 20150821
  Serious: Yes (Hospitalization)
  Sender: FDA-Public Use
  Company Number: IT-BIOGENIDEC-2015BI010458

PATIENT
  Age: 48 Year
  Sex: Female
  Weight: 48 kg

DRUGS (3)
  1. TYSABRI [Suspect]
     Active Substance: NATALIZUMAB
     Indication: MULTIPLE SCLEROSIS
     Route: 042
     Dates: start: 20120420, end: 20141203
  2. 4-AMINOPYRIDINE [Concomitant]
     Active Substance: DALFAMPRIDINE
     Route: 048
     Dates: start: 20130101, end: 20150223
  3. SATIVEX [Concomitant]
     Active Substance: NABIXIMOLS
     Route: 049
     Dates: start: 20131118, end: 20150223

REACTIONS (1)
  - Ovarian endometrioid carcinoma [Not Recovered/Not Resolved]

NARRATIVE: CASE EVENT DATE: 20141015
